FAERS Safety Report 8783328 (Version 3)
Quarter: 2012Q4

REPORT INFORMATION
  Report Type: 
  Country: US (occurrence: US)
  Receive Date: 20120913
  Receipt Date: 20121106
  Transmission Date: 20130627
  Serious: Yes (Other)
  Sender: FDA-Public Use
  Company Number: US-BAYER-2012-092319

PATIENT
  Sex: Male
  Weight: 106.12 kg

DRUGS (12)
  1. MAGNEVIST [Suspect]
     Indication: MRI
     Dosage: UNK
     Route: 042
     Dates: start: 20050801
  2. MAGNEVIST [Suspect]
     Indication: MRI
     Dosage: 20 ml, UNK
     Route: 042
     Dates: start: 20051001
  3. MAGNEVIST [Suspect]
     Indication: MRI
     Dosage: 20 ml, UNK
     Route: 042
     Dates: start: 20060106
  4. MAGNEVIST [Suspect]
     Indication: MRI
     Dosage: UNK
     Dates: start: 20050908
  5. ZEMPLAR [Concomitant]
     Dosage: 3 ?g, UNK
     Route: 042
  6. PHOSLO [Concomitant]
     Dosage: 667 mg, UNK
     Route: 048
  7. NEPHROCAPS [Concomitant]
     Dosage: 1 capsule
     Route: 048
  8. EPOGEN [Concomitant]
     Dosage: 40000 u, UNK
     Route: 042
  9. MAGNESIUM SULFATE [Concomitant]
     Route: 042
  10. HEPARIN [Concomitant]
     Dosage: 5000 u, every 8 hrs
     Route: 058
  11. KAYEXALATE [Concomitant]
     Dosage: 30 g, UNK
     Route: 048
  12. PREDNISONE [Concomitant]
     Dosage: 60 mg, QD

REACTIONS (29)
  - Nephrogenic systemic fibrosis [None]
  - Generalised erythema [None]
  - Pruritus [None]
  - Pain in extremity [None]
  - Burning sensation [None]
  - Skin haemorrhage [None]
  - Skin hypertrophy [None]
  - Skin exfoliation [None]
  - Scab [None]
  - Skin exfoliation [None]
  - Skin fibrosis [None]
  - Skin lesion [None]
  - Blister [None]
  - Skin induration [None]
  - Oedema peripheral [None]
  - Joint range of motion decreased [None]
  - Scar [None]
  - Calciphylaxis [None]
  - Muscular weakness [None]
  - Mobility decreased [None]
  - Anhedonia [None]
  - General physical health deterioration [None]
  - Anxiety [None]
  - Emotional distress [None]
  - Pain [None]
  - Injury [None]
  - Pain [None]
  - Fall [None]
  - Restrictive pulmonary disease [None]
